FAERS Safety Report 9548787 (Version 1)
Quarter: 2013Q3

REPORT INFORMATION
  Report Type: Spontaneous
  Country: US (occurrence: None)
  Receive Date: 20130923
  Receipt Date: 20130923
  Transmission Date: 20140515
  Serious: Yes (Disabling)
  Sender: FDA-Public Use
  Company Number: None

PATIENT
  Age: 36 Year
  Sex: Male

DRUGS (2)
  1. LEVAQUIN [Suspect]
     Indication: EPIDIDYMITIS
  2. CIPRO [Suspect]

REACTIONS (4)
  - Muscle twitching [None]
  - Pain in extremity [None]
  - Pain [None]
  - Fibromyalgia [None]
